FAERS Safety Report 25022845 (Version 3)
Quarter: 2025Q2

REPORT INFORMATION
  Report Type: Report from Study
  Country: US (occurrence: US)
  Receive Date: 20250228
  Receipt Date: 20250406
  Transmission Date: 20250716
  Serious: Yes (Other)
  Sender: ROCHE
  Company Number: US-ROCHE-10000213642

PATIENT
  Age: 81 Year
  Sex: Female

DRUGS (4)
  1. ACTEMRA ACTPEN [Suspect]
     Active Substance: TOCILIZUMAB
     Indication: Systemic scleroderma
     Dosage: INJECT 162MG SUBCUTANEOUSLY EVERY 14 DAY(S)
     Route: 058
  2. ACTEMRA ACTPEN [Suspect]
     Active Substance: TOCILIZUMAB
     Indication: Polyarthritis
  3. ACTEMRA ACTPEN [Suspect]
     Active Substance: TOCILIZUMAB
     Indication: Pneumonia
  4. ACTEMRA ACTPEN [Suspect]
     Active Substance: TOCILIZUMAB
     Indication: Interstitial lung disease

REACTIONS (17)
  - Fall [Unknown]
  - Illness [Unknown]
  - Fatigue [Unknown]
  - Pain [Unknown]
  - Contusion [Unknown]
  - Gait disturbance [Unknown]
  - Influenza [Unknown]
  - Asthenia [Unknown]
  - Neoplasm malignant [Unknown]
  - Clumsiness [Unknown]
  - Neuropathy peripheral [Unknown]
  - Arthritis [Unknown]
  - Upper limb fracture [Unknown]
  - Ankle fracture [Unknown]
  - Haematoma [Unknown]
  - Skin laceration [Unknown]
  - Loss of consciousness [Unknown]
